FAERS Safety Report 21203694 (Version 1)
Quarter: 2022Q3

REPORT INFORMATION
  Report Type: Spontaneous
  Country: TH (occurrence: TH)
  Receive Date: 20220811
  Receipt Date: 20220811
  Transmission Date: 20221027
  Serious: Yes (Other)
  Sender: FDA-Public Use
  Company Number: TH-009507513-2208THA002493

PATIENT
  Age: 88 Year
  Sex: Male

DRUGS (4)
  1. ZERBAXA [Suspect]
     Active Substance: CEFTOLOZANE SULFATE\TAZOBACTAM SODIUM
     Indication: Pneumonia
     Dosage: 3 GRAM IV STAT
     Route: 042
     Dates: start: 20220701, end: 20220701
  2. ZERBAXA [Suspect]
     Active Substance: CEFTOLOZANE SULFATE\TAZOBACTAM SODIUM
     Dosage: 1.5 GRAM IV Q 8 H FOR 14 DAYS
     Route: 042
     Dates: start: 20220701, end: 20220714
  3. ZERBAXA [Suspect]
     Active Substance: CEFTOLOZANE SULFATE\TAZOBACTAM SODIUM
     Dosage: 3 GRAM IV Q 8 H FOR 3 DAYS
     Route: 042
     Dates: start: 20220715, end: 20220717
  4. ZERBAXA [Suspect]
     Active Substance: CEFTOLOZANE SULFATE\TAZOBACTAM SODIUM
     Dosage: 1.5 GRAM IV Q 8 H
     Route: 042
     Dates: start: 20220718, end: 20220720

REACTIONS (2)
  - Thrombocytopenia [Recovered/Resolved with Sequelae]
  - Product use issue [Unknown]

NARRATIVE: CASE EVENT DATE: 20220701
